FAERS Safety Report 9322571 (Version 1)
Quarter: 2013Q2

REPORT INFORMATION
  Report Type: Spontaneous
  Country: US (occurrence: US)
  Receive Date: 20130531
  Receipt Date: 20130531
  Transmission Date: 20140414
  Serious: No
  Sender: FDA-Public Use
  Company Number: US-PFIZER INC-2013164790

PATIENT
  Age: 96 Year
  Sex: Male
  Weight: 79.37 kg

DRUGS (5)
  1. LYRICA [Suspect]
     Indication: SPINAL COLUMN STENOSIS
     Dosage: 50 MG, 1X/DAY
     Route: 048
  2. LYRICA [Suspect]
     Dosage: 25 MG, 1X/DAY
     Route: 048
  3. ZOCOR [Concomitant]
     Indication: BLOOD CHOLESTEROL INCREASED
     Dosage: UNK
  4. AVAPRO [Concomitant]
     Dosage: UNK
  5. ASPIRIN [Concomitant]
     Dosage: 81 MG, UNK

REACTIONS (10)
  - Mood altered [Not Recovered/Not Resolved]
  - Retching [Not Recovered/Not Resolved]
  - Irritability [Not Recovered/Not Resolved]
  - Abnormal behaviour [Not Recovered/Not Resolved]
  - Depression [Not Recovered/Not Resolved]
  - Lip swelling [Recovered/Resolved]
  - Somnolence [Unknown]
  - Visual impairment [Unknown]
  - Dry throat [Not Recovered/Not Resolved]
  - Dry mouth [Not Recovered/Not Resolved]
